FAERS Safety Report 17162422 (Version 2)
Quarter: 2020Q1

REPORT INFORMATION
  Report Type: Report from Study
  Country: US (occurrence: US)
  Receive Date: 20191217
  Receipt Date: 20200213
  Transmission Date: 20200409
  Serious: Yes (Hospitalization, Other)
  Sender: FDA-Public Use
  Company Number: US-ROCHE-2495759

PATIENT
  Age: 87 Year
  Sex: Male
  Weight: 90.8 kg

DRUGS (5)
  1. LUCENTIS [Suspect]
     Active Substance: RANIBIZUMAB
     Indication: NEOVASCULAR AGE-RELATED MACULAR DEGENERATION
  2. LUCENTIS [Suspect]
     Active Substance: RANIBIZUMAB
     Indication: NEOVASCULAR AGE-RELATED MACULAR DEGENERATION
     Route: 050
     Dates: start: 2018
  3. LUCENTIS [Suspect]
     Active Substance: RANIBIZUMAB
     Indication: EYE HAEMORRHAGE
     Route: 050
     Dates: start: 201902
  4. GABAPENTIN. [Concomitant]
     Active Substance: GABAPENTIN
     Indication: NEUROPATHY PERIPHERAL
     Route: 048
  5. LUCENTIS [Suspect]
     Active Substance: RANIBIZUMAB
     Indication: CHOROIDAL NEOVASCULARISATION

REACTIONS (10)
  - Dry eye [Unknown]
  - Blindness [Not Recovered/Not Resolved]
  - Pneumonia [Not Recovered/Not Resolved]
  - Eye swelling [Not Recovered/Not Resolved]
  - Atrial fibrillation [Recovered/Resolved]
  - Cardiac failure congestive [Recovered/Resolved]
  - Hip fracture [Recovered/Resolved]
  - Intestinal obstruction [Not Recovered/Not Resolved]
  - Pneumonia [Recovered/Resolved]
  - Epistaxis [Recovered/Resolved]

NARRATIVE: CASE EVENT DATE: 20181119
